FAERS Safety Report 6568998-3 (Version None)
Quarter: 2010Q1

REPORT INFORMATION
  Report Type: 
  Country: None (occurrence: None)
  Receive Date: 20100203
  Receipt Date: 20100128
  Transmission Date: 20100710
  Serious: No
  Sender: FDA-Public Use
  Company Number: US-B.I. PHARMACEUTICALS,INC./RIDGEFIELD-2003-BP-09125BP

PATIENT
  Age: 76 Year
  Sex: Female

DRUGS (7)
  1. SPIRIVA [Suspect]
     Indication: CHRONIC OBSTRUCTIVE PULMONARY DISEASE
     Dosage: 18 MCG
     Route: 055
     Dates: start: 20031001, end: 20031001
  2. SPIRIVA [Suspect]
     Indication: EMPHYSEMA
  3. SPIRIVA [Suspect]
     Indication: EMPHYSEMA
     Dosage: 18 MCG
     Route: 055
     Dates: start: 20090101
  4. COMBIVENT [Concomitant]
     Indication: EMPHYSEMA
     Dosage: 8 PUF
     Route: 055
  5. FLOVENT [Concomitant]
     Indication: EMPHYSEMA
     Dosage: 2 PUF
     Route: 055
  6. FORADIL [Concomitant]
     Indication: EMPHYSEMA
  7. ATROVENT [Concomitant]
     Indication: EMPHYSEMA

REACTIONS (5)
  - ASTHENIA [None]
  - BACK PAIN [None]
  - DECREASED APPETITE [None]
  - DRUG INEFFECTIVE [None]
  - DYSPNOEA [None]
